FAERS Safety Report 19999623 (Version 1)
Quarter: 2021Q4

REPORT INFORMATION
  Report Type: Spontaneous
  Country: US (occurrence: US)
  Receive Date: 20211027
  Receipt Date: 20211027
  Transmission Date: 20220303
  Serious: No
  Sender: FDA-Public Use
  Company Number: US-SA-SAC20211021001358

PATIENT
  Age: 81 Year
  Sex: Female

DRUGS (18)
  1. DUPIXENT [Suspect]
     Active Substance: DUPILUMAB
     Indication: Asthma
     Dosage: 300 MG, QOW
     Route: 058
     Dates: start: 20210904
  2. ALBUTEROL [Concomitant]
     Active Substance: ALBUTEROL
  3. AMOXICILLIN [Concomitant]
     Active Substance: AMOXICILLIN
  4. ATENOLOL [Concomitant]
     Active Substance: ATENOLOL
  5. BUDESONIDE [Concomitant]
     Active Substance: BUDESONIDE
  6. CLINDAMYCIN [Concomitant]
     Active Substance: CLINDAMYCIN
  7. DIAZEPAM [Concomitant]
     Active Substance: DIAZEPAM
  8. VALIUM [Concomitant]
     Active Substance: DIAZEPAM
  9. ELIQUIS [Concomitant]
     Active Substance: APIXABAN
  10. FLUTICASONE [Concomitant]
     Active Substance: FLUTICASONE
  11. GABAPENTIN [Concomitant]
     Active Substance: GABAPENTIN
  12. MECLIZINE [Concomitant]
     Active Substance: MECLIZINE HYDROCHLORIDE
  13. METHOCARBAMOL [Concomitant]
     Active Substance: METHOCARBAMOL
  14. MOMETASONE [Concomitant]
     Active Substance: MOMETASONE
  15. SPIRONOLACTONE [Concomitant]
     Active Substance: SPIRONOLACTONE
  16. SUCRALFATE [Concomitant]
     Active Substance: SUCRALFATE
  17. ZILEUTON [Concomitant]
     Active Substance: ZILEUTON
  18. CETIRIZINE [Concomitant]
     Active Substance: CETIRIZINE HYDROCHLORIDE

REACTIONS (2)
  - Asthma [Not Recovered/Not Resolved]
  - Product use issue [Unknown]

NARRATIVE: CASE EVENT DATE: 20210904
